FAERS Safety Report 9313639 (Version 2)
Quarter: 2013Q2

REPORT INFORMATION
  Report Type: Spontaneous
  Country: US (occurrence: US)
  Receive Date: 20130528
  Receipt Date: 20130604
  Transmission Date: 20140414
  Serious: Yes (Death, Hospitalization)
  Sender: FDA-Public Use
  Company Number: US-B.I. PHARMACEUTICALS,INC./RIDGEFIELD-2013-BI-14635BP

PATIENT
  Age: 9 Decade
  Sex: Female

DRUGS (11)
  1. PRADAXA [Suspect]
     Indication: ATRIAL FIBRILLATION
     Dosage: 300 MG
     Route: 048
  2. NEXIUM [Concomitant]
  3. STEROIDS [Concomitant]
  4. CARDIZEM [Concomitant]
     Dosage: 300MG/DAY
  5. CRESTOR [Concomitant]
     Dosage: 5MG/DAY
  6. DIGOXIN [Concomitant]
     Dosage: 1.25MG/DAY
  7. SYNTHROID [Concomitant]
     Dosage: 50MG AND ALTERNATE TO 25MG EVERY OTHER DAY
  8. TRICOR [Concomitant]
  9. VITAMIN D [Concomitant]
     Dosage: 200IU/DAY
  10. HYDROCHLOROTHIAZIDE [Concomitant]
     Dosage: 25MG/ DAY
  11. PRILOSEC [Concomitant]

REACTIONS (5)
  - Gastrointestinal haemorrhage [Fatal]
  - Hypovolaemia [Fatal]
  - Diarrhoea [Unknown]
  - Bronchitis [Unknown]
  - Dyspnoea [Unknown]
